FAERS Safety Report 6025180-6 (Version None)
Quarter: 2008Q4

REPORT INFORMATION
  Report Type: 
  Country: None (occurrence: None)
  Receive Date: 20081229
  Receipt Date: 20081229
  Transmission Date: 20090506
  Serious: No
  Sender: FDA-Public Use
  Company Number: None

PATIENT
  Age: 26 Year
  Sex: Female
  Weight: 52.1637 kg

DRUGS (2)
  1. LUPRON DEPOT [Suspect]
     Indication: ENDOMETRIOSIS
     Dosage: 12.75 2 DOSES IM
     Route: 030
     Dates: start: 20080328, end: 20080627
  2. LUPRON DEPOT [Suspect]
     Indication: ENDOMETRIOSIS
     Dosage: 12.75 2 DOSES IM
     Route: 030
     Dates: start: 20080622, end: 20080922

REACTIONS (3)
  - ARTHRALGIA [None]
  - MEMORY IMPAIRMENT [None]
  - MYALGIA [None]
